FAERS Safety Report 23832263 (Version 1)
Quarter: 2024Q2

REPORT INFORMATION
  Report Type: Report from Study
  Country: FR (occurrence: FR)
  Receive Date: 20240508
  Receipt Date: 20240508
  Transmission Date: 20240716
  Serious: Yes (Other)
  Sender: FDA-Public Use
  Company Number: FR-TAKEDA-2024TUS044668

PATIENT
  Sex: Male

DRUGS (22)
  1. TEDUGLUTIDE [Suspect]
     Active Substance: TEDUGLUTIDE
     Indication: Short-bowel syndrome
     Dosage: 2.38 MILLIGRAM, QD
     Route: 042
     Dates: start: 20160516, end: 20160607
  2. TEDUGLUTIDE [Suspect]
     Active Substance: TEDUGLUTIDE
     Indication: Short-bowel syndrome
     Dosage: 2.38 MILLIGRAM, QD
     Route: 042
     Dates: start: 20160516, end: 20160607
  3. TEDUGLUTIDE [Suspect]
     Active Substance: TEDUGLUTIDE
     Indication: Short-bowel syndrome
     Dosage: 2.38 MILLIGRAM, QD
     Route: 042
     Dates: start: 20160516, end: 20160607
  4. TEDUGLUTIDE [Suspect]
     Active Substance: TEDUGLUTIDE
     Indication: Short-bowel syndrome
     Dosage: 2.38 MILLIGRAM, QD
     Route: 042
     Dates: start: 20160516, end: 20160607
  5. TEDUGLUTIDE [Suspect]
     Active Substance: TEDUGLUTIDE
     Dosage: 1.13 MILLIGRAM, QD
     Route: 042
     Dates: start: 20160627, end: 20160909
  6. TEDUGLUTIDE [Suspect]
     Active Substance: TEDUGLUTIDE
     Dosage: 1.13 MILLIGRAM, QD
     Route: 042
     Dates: start: 20160627, end: 20160909
  7. TEDUGLUTIDE [Suspect]
     Active Substance: TEDUGLUTIDE
     Dosage: 1.13 MILLIGRAM, QD
     Route: 042
     Dates: start: 20160627, end: 20160909
  8. TEDUGLUTIDE [Suspect]
     Active Substance: TEDUGLUTIDE
     Dosage: 1.13 MILLIGRAM, QD
     Route: 042
     Dates: start: 20160627, end: 20160909
  9. TEDUGLUTIDE [Suspect]
     Active Substance: TEDUGLUTIDE
     Dosage: 1.33 MILLIGRAM, QD
     Route: 042
     Dates: start: 20191118, end: 20191201
  10. TEDUGLUTIDE [Suspect]
     Active Substance: TEDUGLUTIDE
     Dosage: 1.33 MILLIGRAM, QD
     Route: 042
     Dates: start: 20191118, end: 20191201
  11. TEDUGLUTIDE [Suspect]
     Active Substance: TEDUGLUTIDE
     Dosage: 1.33 MILLIGRAM, QD
     Route: 042
     Dates: start: 20191118, end: 20191201
  12. TEDUGLUTIDE [Suspect]
     Active Substance: TEDUGLUTIDE
     Dosage: 1.33 MILLIGRAM, QD
     Route: 042
     Dates: start: 20191118, end: 20191201
  13. METOCLOPRAMIDE [Concomitant]
     Active Substance: METOCLOPRAMIDE
     Indication: Nausea
     Dosage: UNK
     Route: 048
     Dates: end: 20160609
  14. ONDANSETRON [Concomitant]
     Active Substance: ONDANSETRON
     Indication: Nausea
     Dosage: 4 MILLIGRAM, BID
     Route: 048
     Dates: start: 20160627
  15. PHLOROGLUCINOL [Concomitant]
     Active Substance: PHLOROGLUCINOL
     Indication: Abdominal pain
     Dosage: 80 MILLIGRAM
     Route: 048
     Dates: start: 20160630
  16. ERYTHROMYCIN [Concomitant]
     Active Substance: ERYTHROMYCIN
     Indication: Infection
     Dosage: 250 MILLIGRAM, QID
     Route: 048
     Dates: start: 20160609
  17. IMODIUM [Concomitant]
     Active Substance: LOPERAMIDE HYDROCHLORIDE
     Indication: Prophylaxis
     Dosage: UNK
     Route: 048
  18. CALCIUM\CHOLECALCIFEROL [Concomitant]
     Active Substance: CALCIUM\CHOLECALCIFEROL
     Indication: Vitamin D deficiency
     Dosage: UNK UNK, BID
     Route: 048
     Dates: start: 20160609
  19. Meteospasmyl [Concomitant]
     Dosage: UNK UNK, TID
     Route: 048
     Dates: start: 20160718
  20. ESOMEPRAZOLE [Concomitant]
     Active Substance: ESOMEPRAZOLE
     Dosage: 40 MILLIGRAM, BID
     Route: 048
     Dates: start: 20180223, end: 20180420
  21. AMOXICILLIN\CLAVULANIC ACID [Concomitant]
     Active Substance: AMOXICILLIN\CLAVULANIC ACID
     Dosage: 1 GRAM, TID
     Route: 048
     Dates: start: 20180225, end: 20180225
  22. Lacteol [Concomitant]
     Dosage: 340 MILLIGRAM, TID
     Route: 048
     Dates: start: 20180223, end: 20180225

REACTIONS (1)
  - Impaired gastric emptying [Recovered/Resolved]

NARRATIVE: CASE EVENT DATE: 20191128
